FAERS Safety Report 7622618-5 (Version None)
Quarter: 2011Q3

REPORT INFORMATION
  Report Type: 
  Country: None (occurrence: None)
  Receive Date: 20110712
  Receipt Date: 20110627
  Transmission Date: 20111222
  Serious: Yes (Death, Hospitalization, Other)
  Sender: FDA-Public Use
  Company Number: 2011MA008078

PATIENT
  Age: 54 Year
  Sex: Female

DRUGS (3)
  1. LORAZEPAM [Concomitant]
  2. VENLAFAXINE HYDROCHLORIDE [Suspect]
     Dosage: 150 MG;QD;
  3. OLANZAPINE [Concomitant]

REACTIONS (4)
  - RESTLESSNESS [None]
  - ASPHYXIA [None]
  - DEPRESSION [None]
  - COMPLETED SUICIDE [None]
